FAERS Safety Report 22015445 (Version 1)
Quarter: 2023Q1

REPORT INFORMATION
  Report Type: Spontaneous
  Country: US (occurrence: US)
  Receive Date: 20230221
  Receipt Date: 20230221
  Transmission Date: 20230417
  Serious: No
  Sender: FDA-Public Use
  Company Number: US-BAXTER-2023BAX013065

PATIENT
  Age: 37 Year
  Sex: Male

DRUGS (1)
  1. DIANEAL FOR PERITONEAL DIALYSIS [Suspect]
     Active Substance: ANHYDROUS DEXTROSE\CALCIUM CHLORIDE\MAGNESIUM CHLORIDE\SODIUM CHLORIDE\SODIUM LACTATE
     Indication: Peritoneal dialysis
     Route: 033

REACTIONS (4)
  - Drug intolerance [Unknown]
  - Headache [Unknown]
  - Vomiting [Unknown]
  - Malaise [Unknown]

NARRATIVE: CASE EVENT DATE: 20230212
